FAERS Safety Report 18335506 (Version 5)
Quarter: 2020Q4

REPORT INFORMATION
  Report Type: Spontaneous
  Country: JP (occurrence: JP)
  Receive Date: 20201001
  Receipt Date: 20201230
  Transmission Date: 20210113
  Serious: Yes (Death, Other)
  Sender: FDA-Public Use
  Company Number: JP-PFIZER INC-2020376005

PATIENT
  Age: 68 Year
  Sex: Male

DRUGS (18)
  1. BROTIZOLAM [Concomitant]
     Active Substance: BROTIZOLAM
     Dosage: UNK
     Route: 065
  2. CELECOXIB. [Suspect]
     Active Substance: CELECOXIB
     Dosage: UNK
     Route: 048
  3. DICLOFENAC NA [Suspect]
     Active Substance: DICLOFENAC SODIUM
     Indication: PAIN MANAGEMENT
     Dosage: UNK
     Route: 065
  4. FENTANYL. [Suspect]
     Active Substance: FENTANYL
     Indication: PAIN MANAGEMENT
     Dosage: 1 MG, 1X/DAY (1 MG/24H)
     Route: 062
  5. FENTANYL. [Suspect]
     Active Substance: FENTANYL
     Dosage: 2 MG, 1X/DAY (2 MG/24H)
     Route: 062
  6. SENNOSIDE A [Concomitant]
     Active Substance: SENNOSIDE A
     Dosage: UNK
     Route: 065
  7. OXYCODONE [Concomitant]
     Active Substance: OXYCODONE
     Dosage: 5 MG, 2X/DAY
     Route: 065
  8. OXYCODONE [Concomitant]
     Active Substance: OXYCODONE
     Dosage: 5 MG, 3X/DAY
     Route: 065
  9. DICLOFENAC NA [Suspect]
     Active Substance: DICLOFENAC SODIUM
     Dosage: 25 MG, 2X/DAY
     Route: 065
  10. VONOPRAZAN FUMARATE [Concomitant]
     Active Substance: VONOPRAZAN FUMARATE
     Dosage: UNK
     Route: 065
  11. DICLOFENAC NA [Suspect]
     Active Substance: DICLOFENAC SODIUM
     Dosage: 25 MG, 2X/DAY
     Route: 065
  12. DICLOFENAC NA [Suspect]
     Active Substance: DICLOFENAC SODIUM
     Dosage: 25 MG, 1X/DAY
     Route: 065
  13. METOCLOPRAMIDE. [Concomitant]
     Active Substance: METOCLOPRAMIDE
     Dosage: UNK
     Route: 065
  14. OXYCODONE [Concomitant]
     Active Substance: OXYCODONE
     Indication: PAIN MANAGEMENT
     Dosage: 5 MG, 1X/DAY
     Route: 065
  15. OXYCODONE [Concomitant]
     Active Substance: OXYCODONE
     Dosage: 5 MG, 1X/DAY
     Route: 065
  16. DICLOFENAC NA [Suspect]
     Active Substance: DICLOFENAC SODIUM
     Dosage: 25 MG, 1X/DAY
     Route: 065
  17. DICLOFENAC NA [Suspect]
     Active Substance: DICLOFENAC SODIUM
     Dosage: 25 MG, 1X/DAY
     Route: 065
  18. ETIZOLAM [Concomitant]
     Active Substance: ETIZOLAM
     Dosage: UNK
     Route: 065

REACTIONS (3)
  - Enterocolitis [Fatal]
  - Shock [Fatal]
  - Gastrointestinal perforation [Fatal]
